FAERS Safety Report 5269244-3 (Version None)
Quarter: 2007Q1

REPORT INFORMATION
  Report Type: 
  Country: None (occurrence: None)
  Receive Date: 20070319
  Receipt Date: 20070309
  Transmission Date: 20070707
  Serious: Yes (Disabling)
  Sender: FDA-Public Use
  Company Number: GB-ABBOTT-07P-167-0361499-00

PATIENT
  Age: 47 Year
  Sex: Male

DRUGS (7)
  1. CLARITHROMYCIN [Suspect]
     Indication: INFECTION
     Dates: start: 20060924, end: 20061101
  2. ATORVASTATIN CALCIUM [Suspect]
     Indication: HYPERCHOLESTEROLAEMIA
  3. LOSARTAN POSTASSIUM [Concomitant]
     Indication: HYPERTENSION
  4. EZETIMIBE [Concomitant]
     Indication: HYPERCHOLESTEROLAEMIA
  5. SYMBICORT [Concomitant]
     Indication: CHRONIC OBSTRUCTIVE PULMONARY DISEASE
  6. FORMOTEROL FUMARATE [Concomitant]
     Indication: DRUG USE FOR UNKNOWN INDICATION
  7. OMEPRAZOLE [Concomitant]
     Indication: PEPTIC ULCER

REACTIONS (3)
  - BACK PAIN [None]
  - MYALGIA [None]
  - SKIN REACTION [None]
